FAERS Safety Report 21885718 (Version 1)
Quarter: 2023Q1

REPORT INFORMATION
  Report Type: Spontaneous
  Country: SE (occurrence: SE)
  Receive Date: 20230119
  Receipt Date: 20230119
  Transmission Date: 20230417
  Serious: Yes (Hospitalization)
  Sender: FDA-Public Use
  Company Number: None

PATIENT
  Age: 74 Year
  Sex: Female

DRUGS (2)
  1. LEVOFLOXACIN [Suspect]
     Active Substance: LEVOFLOXACIN
     Indication: Bronchitis
     Dosage: 500 MILLIGRAM, QD
     Route: 065
     Dates: start: 20221017, end: 20221019
  2. LEVOFLOXACIN [Suspect]
     Active Substance: LEVOFLOXACIN
     Indication: Cough
     Dosage: UNK
     Route: 065

REACTIONS (5)
  - Muscle spasms [Recovering/Resolving]
  - Pain in extremity [Recovering/Resolving]
  - Gait disturbance [Recovering/Resolving]
  - Palpitations [Recovered/Resolved]
  - Tremor [Recovering/Resolving]

NARRATIVE: CASE EVENT DATE: 20221017
